FAERS Safety Report 10658351 (Version 1)
Quarter: 2014Q4

REPORT INFORMATION
  Report Type: Report from Study
  Country: TN (occurrence: TN)
  Receive Date: 20141217
  Receipt Date: 20141217
  Transmission Date: 20150529
  Serious: Yes (Death)
  Sender: FDA-Public Use
  Company Number: TN-SA-2014SA170708

PATIENT
  Age: 84 Year
  Sex: Male

DRUGS (9)
  1. AMAREL [Concomitant]
     Active Substance: GLIMEPIRIDE
  2. CINCOR [Concomitant]
     Route: 048
     Dates: end: 20141117
  3. TAHOR [Concomitant]
     Active Substance: ATORVASTATIN CALCIUM
  4. KARDEGIC [Concomitant]
     Active Substance: ASPIRIN LYSINE
     Dates: end: 20141117
  5. HYPOTEN [Concomitant]
     Route: 048
     Dates: end: 20141117
  6. TRIATEC [Concomitant]
     Active Substance: RAMIPRIL
     Route: 048
     Dates: end: 20141107
  7. DAONIL [Concomitant]
     Active Substance: GLYBURIDE
  8. AMLOR [Concomitant]
     Active Substance: AMLODIPINE BESYLATE
  9. PLAVIX [Suspect]
     Active Substance: CLOPIDOGREL BISULFATE
     Indication: ANGINA UNSTABLE
     Route: 048
     Dates: start: 20140825, end: 20141117

REACTIONS (1)
  - Death [Fatal]

NARRATIVE: CASE EVENT DATE: 20141117
